FAERS Safety Report 7805404-2 (Version None)
Quarter: 2011Q4

REPORT INFORMATION
  Report Type: 
  Country: None (occurrence: None)
  Receive Date: 20111010
  Receipt Date: 20111004
  Transmission Date: 20120403
  Serious: Yes (Hospitalization, Other)
  Sender: FDA-Public Use
  Company Number: AU-ROXANE LABORATORIES, INC.-2011-RO-01401RO

PATIENT
  Age: 61 Year
  Sex: Male

DRUGS (4)
  1. OXYCODONE HCL [Suspect]
     Indication: BACK PAIN
  2. FLUOROURACIL [Suspect]
     Indication: RECTAL CANCER
     Route: 042
  3. CITALOPRAM [Suspect]
     Indication: DEPRESSION
  4. SIMVASTATIN [Suspect]
     Indication: DYSLIPIDAEMIA

REACTIONS (6)
  - ELECTROCARDIOGRAM ST SEGMENT ELEVATION [None]
  - CARDIOTOXICITY [None]
  - WHITE BLOOD CELL COUNT INCREASED [None]
  - C-REACTIVE PROTEIN INCREASED [None]
  - HAEMOGLOBIN DECREASED [None]
  - SINUS BRADYCARDIA [None]
